FAERS Safety Report 19614167 (Version 1)
Quarter: 2021Q3

REPORT INFORMATION
  Report Type: Spontaneous
  Country: AU (occurrence: AU)
  Receive Date: 20210727
  Receipt Date: 20210727
  Transmission Date: 20211014
  Serious: Yes (Hospitalization)
  Sender: FDA-Public Use
  Company Number: AU-NOVOPROD-827802

PATIENT
  Age: 59 Year
  Sex: Female
  Weight: 108 kg

DRUGS (3)
  1. OZEMPIC [Suspect]
     Active Substance: SEMAGLUTIDE
     Indication: WEIGHT CONTROL
     Dosage: 0.5 MG, QW
     Route: 058
     Dates: start: 20210120, end: 20210409
  2. CALCIUM [Concomitant]
     Active Substance: CALCIUM
     Indication: HYPERTHYROIDISM
     Dosage: UNK
     Route: 065
  3. OZEMPIC [Suspect]
     Active Substance: SEMAGLUTIDE
     Dosage: UNK
     Route: 058
     Dates: start: 20210630

REACTIONS (5)
  - Dehydration [Unknown]
  - Acute kidney injury [Recovering/Resolving]
  - Decreased appetite [Unknown]
  - Product use in unapproved indication [Unknown]
  - Weight decreased [Unknown]

NARRATIVE: CASE EVENT DATE: 20210120
